FAERS Safety Report 14320372 (Version 2)
Quarter: 2017Q4

REPORT INFORMATION
  Report Type: Spontaneous
  Country: AT (occurrence: AT)
  Receive Date: 20171222
  Receipt Date: 20171229
  Transmission Date: 20180321
  Serious: Yes (Hospitalization)
  Sender: FDA-Public Use
  Company Number: AT-PFIZER INC-2012243568

PATIENT
  Age: 68 Year
  Sex: Male

DRUGS (13)
  1. HALDOL [Suspect]
     Active Substance: HALOPERIDOL
     Indication: PSYCHOTIC SYMPTOM
     Dosage: 6 MG, DAILY
     Route: 048
     Dates: start: 20120919, end: 20120919
  2. HALDOL [Suspect]
     Active Substance: HALOPERIDOL
     Dosage: 5 MG, DAILY
     Route: 042
     Dates: start: 20120921, end: 20120921
  3. ABILIFY [Suspect]
     Active Substance: ARIPIPRAZOLE
     Indication: PSYCHOTIC SYMPTOM
     Dosage: 19.5 MG, DAILY
     Route: 030
     Dates: start: 20120921, end: 20120924
  4. ABILIFY [Suspect]
     Active Substance: ARIPIPRAZOLE
     Indication: MANIA
  5. SYCREST [Concomitant]
     Active Substance: ASENAPINE MALEATE
     Dosage: 20 MG, 1X/DAY
     Dates: start: 20120916, end: 20120919
  6. DEPAKINE [Suspect]
     Active Substance: VALPROATE SODIUM
     Indication: MANIA
  7. TEMESTA (LORAZEPAM) [Suspect]
     Active Substance: LORAZEPAM
     Dosage: 8 MG, DAILY
     Route: 042
     Dates: start: 20120921
  8. GEWACALM [Suspect]
     Active Substance: DIAZEPAM
     Dosage: 30 MG, DAILY
     Route: 048
     Dates: start: 20120916, end: 20120921
  9. GLUCOSE [Concomitant]
     Active Substance: DEXTROSE
     Dosage: 500 ML (5%)
     Dates: start: 20120920
  10. HALDOL [Suspect]
     Active Substance: HALOPERIDOL
     Indication: MANIA
     Dosage: 15 MG, DAILY
     Route: 042
     Dates: start: 20120920, end: 20120920
  11. DEPAKINE [Suspect]
     Active Substance: VALPROATE SODIUM
     Indication: PSYCHOTIC SYMPTOM
     Dosage: 800 MG, DAILY
     Route: 042
     Dates: start: 20120919
  12. AKINETON [Suspect]
     Active Substance: BIPERIDEN HYDROCHLORIDE
     Dosage: 10 MG, DAILY
     Route: 042
     Dates: start: 20120920, end: 20120920
  13. AKINETON [Suspect]
     Active Substance: BIPERIDEN HYDROCHLORIDE
     Dosage: 5 MG, DAILY
     Route: 042
     Dates: start: 20120921, end: 20120921

REACTIONS (1)
  - Electrocardiogram QT prolonged [Recovering/Resolving]

NARRATIVE: CASE EVENT DATE: 20120921
